FAERS Safety Report 5269391-6 (Version None)
Quarter: 2007Q1

REPORT INFORMATION
  Report Type: 
  Country: None (occurrence: None)
  Receive Date: 20070316
  Receipt Date: 20070316
  Transmission Date: 20070707
  Serious: Yes (Life-Threatening)
  Sender: FDA-Public Use
  Company Number: None

PATIENT
  Sex: Female
  Weight: 166.4701 kg

DRUGS (1)
  1. VERAPAMIL [Suspect]

REACTIONS (2)
  - ARRHYTHMIA [None]
  - PALPITATIONS [None]
